FAERS Safety Report 7763453 (Version 10)
Quarter: 2013Q2

REPORT INFORMATION
  Report Type: Report from Study
  Country: US (occurrence: US)
  Receive Date: 20110117
  Receipt Date: 20130521
  Transmission Date: 20140414
  Serious: Yes (Hospitalization, Other)
  Sender: FDA-Public Use
  Company Number: PHHY2011US01326

PATIENT
  Age: 37 Year
  Sex: Female
  Weight: 41.86 kg

DRUGS (16)
  1. GILENYA [Suspect]
     Indication: RELAPSING-REMITTING MULTIPLE SCLEROSIS
     Dosage: 0.5 MG, QD
     Route: 048
     Dates: start: 20110104, end: 20120601
  2. COPAXONE [Suspect]
     Dosage: UNK UKN, UNK
  3. REBIF /NET/ [Suspect]
     Dosage: UNK UKN, UNK
  4. AVONEX [Suspect]
     Dosage: UNK UKN, QW
  5. NUCYNTA [Suspect]
     Dosage: 100 MG, QID
  6. TYSABRI [Suspect]
     Dosage: UNK UKN, ONCE IN A MONTH
  7. TRAZODONE [Concomitant]
     Dosage: 150 MG, PRN
  8. KLONOPIN [Concomitant]
     Dosage: 2 MG, UNK
  9. ZOFRAN [Concomitant]
     Dosage: 8 MG, PRN
  10. TOPAMAX [Concomitant]
     Dosage: 200 MG, QD
  11. CITRO-MAG [Concomitant]
     Indication: NAUSEA
     Dosage: 1 MG, Q2-3 HRS
  12. ZANAFLEX [Concomitant]
     Dosage: 4 MG, PRN
  13. KYTRIL [Concomitant]
     Dosage: 1 MG, UNK
  14. PROTONIX ^PHARMACIA^ [Concomitant]
     Dosage: 20 MG, UNK
  15. NEURONTIN [Concomitant]
     Dosage: 100 MG, UNK
  16. LEXAPRO [Concomitant]
     Dosage: 5 MG, UNK

REACTIONS (23)
  - Impaired gastric emptying [Not Recovered/Not Resolved]
  - Vomiting [Not Recovered/Not Resolved]
  - Nausea [Not Recovered/Not Resolved]
  - Retching [Unknown]
  - Decreased appetite [Unknown]
  - Fatigue [Not Recovered/Not Resolved]
  - Weight decreased [Not Recovered/Not Resolved]
  - Dehydration [Not Recovered/Not Resolved]
  - Throat tightness [Not Recovered/Not Resolved]
  - Amnesia [Not Recovered/Not Resolved]
  - Disturbance in attention [Unknown]
  - Movement disorder [Unknown]
  - Contusion [Unknown]
  - Malaise [Unknown]
  - Hypersomnia [Unknown]
  - Visual impairment [Unknown]
  - Discomfort [Unknown]
  - Fall [Unknown]
  - Pyrexia [Unknown]
  - Pain in extremity [Unknown]
  - Asthenia [Not Recovered/Not Resolved]
  - Pharyngitis streptococcal [Not Recovered/Not Resolved]
  - Diarrhoea [Unknown]
